FAERS Safety Report 10354132 (Version 2)
Quarter: 2014Q3

REPORT INFORMATION
  Report Type: Spontaneous
  Country: JP (occurrence: JP)
  Receive Date: 20140731
  Receipt Date: 20140911
  Transmission Date: 20150326
  Serious: Yes (Other)
  Sender: FDA-Public Use
  Company Number: PHHY2014JP091548

PATIENT
  Sex: Male

DRUGS (2)
  1. GLUCOSE [Concomitant]
     Active Substance: DEXTROSE
  2. SANDOSTATIN [Suspect]
     Active Substance: OCTREOTIDE ACETATE
     Indication: HYPERINSULINISM
     Dosage: 17 UG/KG/DAY, (FOR DURATION OF 2. 7 YEARS)
     Route: 058

REACTIONS (3)
  - Blood growth hormone decreased [Recovered/Resolved]
  - Growth retardation [Unknown]
  - Gene mutation [Unknown]
